FAERS Safety Report 9363851 (Version 2)
Quarter: 2013Q3

REPORT INFORMATION
  Report Type: Spontaneous
  Country: IT (occurrence: None)
  Receive Date: 20130618
  Receipt Date: 20130716
  Transmission Date: 20140515
  Serious: Yes (Life-Threatening)
  Sender: FDA-Public Use
  Company Number: FK201302022

PATIENT
  Age: 58 Year
  Sex: Female

DRUGS (3)
  1. CEFTRIAXON [Suspect]
     Indication: TRACHEITIS
     Route: 030
     Dates: start: 20130528, end: 20130528
  2. FLUCONAZOLE (FLUCONAZOLE) (FLUCONAZOLE) [Concomitant]
  3. IRBESARTAN (IRBESARTAN) (IRBESARTAN) [Concomitant]

REACTIONS (1)
  - Anaphylactic shock [None]
